FAERS Safety Report 7535349-7 (Version None)
Quarter: 2011Q2

REPORT INFORMATION
  Report Type: 
  Country: None (occurrence: None)
  Receive Date: 20110609
  Receipt Date: 20080404
  Transmission Date: 20111010
  Serious: Yes (Death, Other)
  Sender: FDA-Public Use
  Company Number: PHFR2008GB01089

PATIENT
  Sex: Male

DRUGS (6)
  1. CITALOPRAM HYDROBROMIDE [Concomitant]
     Indication: DEPRESSION
     Dosage: 20 MG, UNK
     Route: 048
     Dates: start: 19990501, end: 20080301
  2. OMEPRAZOLE [Concomitant]
     Indication: DYSPEPSIA
     Dosage: 40 MG, UNK
     Route: 048
     Dates: start: 20070901
  3. RISPERIDONE [Concomitant]
     Indication: PSYCHOTIC DISORDER
     Dosage: 1 MG, UNK
     Route: 048
     Dates: start: 20060801, end: 20080301
  4. PIRENZEPINE [Concomitant]
     Indication: SALIVARY HYPERSECRETION
     Dosage: 25 MG, UNK
     Route: 048
     Dates: start: 20060801, end: 20080301
  5. FERROUS SULFATE TAB [Concomitant]
     Indication: ANAEMIA
     Dosage: 600 MG, UNK
     Route: 048
     Dates: start: 20070901
  6. CLOZAPINE [Suspect]
     Indication: SCHIZOPHRENIA
     Dosage: 175 MG, UNK
     Route: 048
     Dates: start: 20031120

REACTIONS (3)
  - CHOROID MELANOMA [None]
  - DEATH [None]
  - ELECTROCARDIOGRAM QT PROLONGED [None]
